FAERS Safety Report 14280822 (Version 1)
Quarter: 2017Q4

REPORT INFORMATION
  Report Type: Spontaneous
  Country: US (occurrence: US)
  Receive Date: 20171213
  Receipt Date: 20171213
  Transmission Date: 20180321
  Serious: Yes (Death, Other)
  Sender: FDA-Public Use
  Company Number: US-BRISTOL-MYERS SQUIBB COMPANY-BMS-2017-113140

PATIENT
  Age: 79 Year
  Sex: Female

DRUGS (1)
  1. OPDIVO [Suspect]
     Active Substance: NIVOLUMAB
     Indication: GLIOBLASTOMA
     Dosage: 240 MG, Q2WK
     Route: 065
     Dates: start: 20170822, end: 20171121

REACTIONS (1)
  - Death [Fatal]

NARRATIVE: CASE EVENT DATE: 20171210
